FAERS Safety Report 21783878 (Version 12)
Quarter: 2024Q1

REPORT INFORMATION
  Report Type: Spontaneous
  Country: US (occurrence: US)
  Receive Date: 20221227
  Receipt Date: 20240329
  Transmission Date: 20240409
  Serious: No
  Sender: FDA-Public Use
  Company Number: US-PFIZER INC-PV202200129602

PATIENT
  Age: 84 Year
  Sex: Female
  Weight: 72.57 kg

DRUGS (1)
  1. PREMARIN [Suspect]
     Active Substance: ESTROGENS, CONJUGATED
     Indication: Hormone replacement therapy
     Dosage: 0.625 MG

REACTIONS (10)
  - Product dispensing issue [Unknown]
  - Malaise [Unknown]
  - Dysphemia [Recovered/Resolved]
  - Feeling abnormal [Unknown]
  - Sleep deficit [Unknown]
  - Nasopharyngitis [Unknown]
  - Gait disturbance [Unknown]
  - Cartilage injury [Unknown]
  - Arthralgia [Unknown]
  - Influenza [Recovered/Resolved]
